FAERS Safety Report 8490393-0 (Version None)
Quarter: 2012Q3

REPORT INFORMATION
  Report Type: 
  Country: None (occurrence: None)
  Receive Date: 20120705
  Receipt Date: 20120702
  Transmission Date: 20120928
  Serious: Yes (Hospitalization)
  Sender: FDA-Public Use
  Company Number: US-PFIZER INC-2012111339

PATIENT
  Sex: Female
  Weight: 63.946 kg

DRUGS (7)
  1. PREVACID [Concomitant]
     Dosage: UNK
  2. TRAMADOL [Concomitant]
     Dosage: UNK
  3. MECLIZINE [Concomitant]
     Dosage: UNK, AS NEEDED
  4. LIPITOR [Concomitant]
     Dosage: UNK
  5. ATENOLOL [Concomitant]
     Dosage: UNK
  6. LYRICA [Suspect]
     Indication: NEUROPATHY PERIPHERAL
     Dosage: 50 MG, 2X/DAY
     Route: 048
     Dates: start: 20090101
  7. NORVASC [Concomitant]
     Dosage: UNK

REACTIONS (2)
  - CHEST PAIN [None]
  - ANGINA PECTORIS [None]
